FAERS Safety Report 23850040 (Version 1)
Quarter: 2024Q2

REPORT INFORMATION
  Report Type: Spontaneous
  Country: US (occurrence: None)
  Receive Date: 20240512
  Receipt Date: 20240512
  Transmission Date: 20240716
  Serious: No
  Sender: FDA-Public Use
  Company Number: None

PATIENT
  Age: 75 Year
  Sex: Female
  Weight: 72.9 kg

DRUGS (1)
  1. OTEZLA [Suspect]
     Active Substance: APREMILAST
     Indication: Psoriasis
     Dates: start: 20240404

REACTIONS (6)
  - Drug ineffective [None]
  - Diarrhoea [None]
  - Nausea [None]
  - Headache [None]
  - Insomnia [None]
  - Defaecation urgency [None]

NARRATIVE: CASE EVENT DATE: 20240404
